FAERS Safety Report 7771772-3 (Version None)
Quarter: 2011Q3

REPORT INFORMATION
  Report Type: 
  Country: None (occurrence: None)
  Receive Date: 20110922
  Receipt Date: 20110915
  Transmission Date: 20111222
  Serious: Yes (Hospitalization, Other)
  Sender: FDA-Public Use
  Company Number: US-TEVA-301125USA

PATIENT
  Age: 33 Year
  Sex: Male

DRUGS (1)
  1. RISPERIDONE [Suspect]
     Dosage: 8 MG

REACTIONS (2)
  - SUICIDE ATTEMPT [None]
  - SOMNOLENCE [None]
